FAERS Safety Report 5346935-7 (Version None)
Quarter: 2007Q2

REPORT INFORMATION
  Report Type: 
  Country: None (occurrence: None)
  Receive Date: 20070430
  Receipt Date: 20070221
  Transmission Date: 20071010
  Serious: No
  Sender: FDA-Public Use
  Company Number: 261072

PATIENT
  Age: 67 Year
  Sex: Male

DRUGS (1)
  1. LEVEMIR FLEXPEN           INSULIN DETEMIR) [Suspect]
     Indication: INSULIN-REQUIRING TYPE II DIABETES MELLITUS
     Dosage: 10 LU, QD
     Dates: start: 20070213

REACTIONS (10)
  - ABDOMINAL DISTENSION [None]
  - CHEST DISCOMFORT [None]
  - CONSTIPATION [None]
  - DIPLOPIA [None]
  - DYSPNOEA [None]
  - FATIGUE [None]
  - FLUID RETENTION [None]
  - PHOTOPHOBIA [None]
  - SLUGGISHNESS [None]
  - VISUAL DISTURBANCE [None]
